FAERS Safety Report 9472531 (Version 1)
Quarter: 2013Q3

REPORT INFORMATION
  Report Type: Spontaneous
  Country: GB (occurrence: GB)
  Receive Date: 20130823
  Receipt Date: 20130823
  Transmission Date: 20140515
  Serious: Yes (Other)
  Sender: FDA-Public Use
  Company Number: GB-ROCHE-1264901

PATIENT
  Age: 79 Year
  Sex: Male

DRUGS (6)
  1. LUCENTIS [Suspect]
     Indication: AGE-RELATED MACULAR DEGENERATION
     Route: 050
     Dates: start: 20130327
  2. LUCENTIS [Suspect]
     Route: 050
     Dates: start: 20130522
  3. TEGRETOL [Concomitant]
  4. LEVOTHYROXINE [Concomitant]
  5. ATORVASTATIN CALCIUM [Concomitant]
  6. ADALAT [Concomitant]

REACTIONS (1)
  - Rash maculo-papular [Recovering/Resolving]
